FAERS Safety Report 12355742 (Version 1)
Quarter: 2016Q2

REPORT INFORMATION
  Report Type: Spontaneous
  Country: US (occurrence: None)
  Receive Date: 20160510
  Receipt Date: 20160510
  Transmission Date: 20160815
  Serious: Yes (Disabling)
  Sender: FDA-Public Use
  Company Number: None

PATIENT
  Age: 62 Year
  Sex: Female
  Weight: 117.94 kg

DRUGS (24)
  1. LASIX [Concomitant]
     Active Substance: FUROSEMIDE
  2. POTASSIUM CHLORIDE ER [Concomitant]
     Active Substance: POTASSIUM CHLORIDE
  3. ASA [Concomitant]
     Active Substance: ASPIRIN
  4. ATORVASTATIN [Concomitant]
     Active Substance: ATORVASTATIN
  5. BUDESONIDE. [Concomitant]
     Active Substance: BUDESONIDE
  6. CLONAZEPAM. [Concomitant]
     Active Substance: CLONAZEPAM
  7. DOMPERIDONE [Concomitant]
     Active Substance: DOMPERIDONE
  8. TOUJEO [Concomitant]
     Active Substance: INSULIN GLARGINE
  9. VENTOLIN HFA [Concomitant]
     Active Substance: ALBUTEROL SULFATE
  10. AMITRIPTYLINE [Concomitant]
     Active Substance: AMITRIPTYLINE
  11. ZAFIRLUKAST. [Concomitant]
     Active Substance: ZAFIRLUKAST
  12. BACLOFEN. [Concomitant]
     Active Substance: BACLOFEN
  13. CARAFATE [Concomitant]
     Active Substance: SUCRALFATE
  14. NITROGLYCERIN. [Concomitant]
     Active Substance: NITROGLYCERIN
  15. NOVOLOG [Concomitant]
     Active Substance: INSULIN ASPART
  16. IPRATROPIUM-ALBUTEROL [Concomitant]
     Active Substance: ALBUTEROL\IPRATROPIUM
  17. METOPROLOL SUCCINATE ER [Concomitant]
     Active Substance: METOPROLOL SUCCINATE
  18. QUINAPRIL. [Concomitant]
     Active Substance: QUINAPRIL
  19. CYSTEX PLUS (METHENAMINE-SODIUM SALICYLATE) [Concomitant]
  20. NITROSTAT [Concomitant]
     Active Substance: NITROGLYCERIN
  21. CPAP [Concomitant]
     Active Substance: DEVICE
  22. LEVOFLOXACIN 500MG TABLET/GENERIC FOR LEVAQUIN 500MG TABLET [Suspect]
     Active Substance: LEVOFLOXACIN
     Indication: URINARY TRACT INFECTION
     Route: 048
     Dates: start: 20151010, end: 20151224
  23. PANTOPRAZOLE [Concomitant]
     Active Substance: PANTOPRAZOLE SODIUM
  24. OXYGENT [Concomitant]

REACTIONS (3)
  - Musculoskeletal pain [None]
  - Pain in extremity [None]
  - Hypoaesthesia [None]

NARRATIVE: CASE EVENT DATE: 20151101
